FAERS Safety Report 8391862-4 (Version None)
Quarter: 2012Q2

REPORT INFORMATION
  Report Type: 
  Country: None (occurrence: None)
  Receive Date: 20120529
  Receipt Date: 20120521
  Transmission Date: 20120825
  Serious: Yes (Hospitalization, Congenital Anomaly)
  Sender: FDA-Public Use
  Company Number: US-GLAXOSMITHKLINE-A0951257A

PATIENT
  Sex: Male
  Weight: 4 kg

DRUGS (3)
  1. PAXIL CR [Suspect]
     Indication: DEPRESSION
     Dosage: 25MG AT NIGHT
     Route: 064
     Dates: start: 20030506
  2. MULTI-VITAMINS [Concomitant]
     Route: 064
  3. IRON SUPPLEMENTS [Concomitant]
     Route: 064

REACTIONS (3)
  - FALLOT'S TETRALOGY [None]
  - FOETAL EXPOSURE DURING PREGNANCY [None]
  - MATERNAL DRUGS AFFECTING FOETUS [None]
